FAERS Safety Report 20224290 (Version 1)
Quarter: 2021Q4

REPORT INFORMATION
  Report Type: Spontaneous
  Country: DE (occurrence: DE)
  Receive Date: 20211223
  Receipt Date: 20211223
  Transmission Date: 20220304
  Serious: Yes (Hospitalization)
  Sender: FDA-Public Use
  Company Number: DE-ABBVIE-21K-062-4206692-00

PATIENT
  Age: 75 Year
  Sex: Female

DRUGS (17)
  1. VALPROIC ACID [Suspect]
     Active Substance: VALPROIC ACID
     Indication: Product used for unknown indication
     Route: 065
  2. VALPROIC ACID [Suspect]
     Active Substance: VALPROIC ACID
     Route: 065
     Dates: start: 20081202, end: 20081209
  3. TRILEPTAL [Suspect]
     Active Substance: OXCARBAZEPINE
     Indication: Product used for unknown indication
     Route: 065
     Dates: start: 20081203, end: 200812
  4. TRILEPTAL [Suspect]
     Active Substance: OXCARBAZEPINE
     Route: 065
     Dates: start: 20081213, end: 200812
  5. TRILEPTAL [Suspect]
     Active Substance: OXCARBAZEPINE
     Route: 065
     Dates: start: 20081206, end: 200812
  6. TRILEPTAL [Suspect]
     Active Substance: OXCARBAZEPINE
     Route: 065
     Dates: start: 20081212, end: 200812
  7. TRILEPTAL [Suspect]
     Active Substance: OXCARBAZEPINE
     Route: 065
     Dates: start: 20081202, end: 200812
  8. TRILEPTAL [Suspect]
     Active Substance: OXCARBAZEPINE
     Route: 065
     Dates: start: 20081211, end: 200812
  9. TRILEPTAL [Suspect]
     Active Substance: OXCARBAZEPINE
     Route: 065
     Dates: start: 20081205, end: 200812
  10. TRILEPTAL [Suspect]
     Active Substance: OXCARBAZEPINE
     Route: 065
  11. LAMOTRIGINE [Suspect]
     Active Substance: LAMOTRIGINE
     Indication: Product used for unknown indication
     Route: 065
     Dates: start: 20081112, end: 20081120
  12. AMARYL [Concomitant]
     Active Substance: GLIMEPIRIDE
     Indication: Product used for unknown indication
  13. ASPIRIN [Concomitant]
     Active Substance: ASPIRIN
     Indication: Product used for unknown indication
  14. MIRTAZAPINE [Concomitant]
     Active Substance: MIRTAZAPINE
     Indication: Product used for unknown indication
     Dates: start: 20081127
  15. SOLVEX [Concomitant]
     Indication: Product used for unknown indication
  16. METFORMIN [Concomitant]
     Active Substance: METFORMIN HYDROCHLORIDE
     Indication: Product used for unknown indication
  17. SIMVASTATIN [Concomitant]
     Active Substance: SIMVASTATIN
     Indication: Product used for unknown indication

REACTIONS (2)
  - Dermatitis allergic [Recovered/Resolved]
  - Hyponatraemia [Recovered/Resolved]

NARRATIVE: CASE EVENT DATE: 20081120
